FAERS Safety Report 7098213-6 (Version None)
Quarter: 2010Q4

REPORT INFORMATION
  Report Type: 
  Country: None (occurrence: None)
  Receive Date: 20101112
  Receipt Date: 20101102
  Transmission Date: 20110411
  Serious: Yes (Hospitalization, Other)
  Sender: FDA-Public Use
  Company Number: GB-SANOFI-AVENTIS-200916009GDDC

PATIENT
  Age: 39 Year
  Sex: Female

DRUGS (7)
  1. ARAVA [Suspect]
     Route: 048
     Dates: start: 20060601, end: 20090520
  2. ARAVA [Suspect]
     Indication: RHEUMATOID ARTHRITIS
     Route: 048
     Dates: start: 20060601, end: 20090520
  3. ARCOXIA [Concomitant]
     Route: 048
     Dates: start: 20080101, end: 20090501
  4. TRAMADOL HCL [Concomitant]
     Dosage: DOSE AS USED: APPROXIMATELY 3/DAY
     Route: 048
  5. AMITRIPTYLINE HCL [Concomitant]
     Dosage: DOSE AS USED: UNK
     Route: 048
  6. VENLAFAXINE [Concomitant]
     Indication: DEPRESSION
     Route: 048
     Dates: start: 20000101
  7. DESOGESTREL AND ETHINYL ESTRADIOL [Concomitant]
     Indication: CONTRACEPTION
     Route: 048

REACTIONS (5)
  - AMNESIA [None]
  - CONFUSIONAL STATE [None]
  - ENCEPHALITIS VIRAL [None]
  - HEADACHE [None]
  - LIVER FUNCTION TEST ABNORMAL [None]
